FAERS Safety Report 5950500-8 (Version None)
Quarter: 2008Q4

REPORT INFORMATION
  Report Type: 
  Country: None (occurrence: None)
  Receive Date: 20081022
  Receipt Date: 20080620
  Transmission Date: 20090506
  Serious: No
  Sender: FDA-Public Use
  Company Number: SPV1-2008-01373

PATIENT
  Age: 40 Year
  Sex: Female
  Weight: 90.7 kg

DRUGS (8)
  1. VYVANSE [Suspect]
     Indication: ATTENTION DEFICIT/HYPERACTIVITY DISORDER
     Dosage: 70 MG, 1X/DAY:QD, ORAL
     Route: 048
     Dates: start: 20080101, end: 20080601
  2. XYREM [Concomitant]
  3. LYRICA [Concomitant]
  4. CLONAZEPAM [Concomitant]
  5. EFFEXOR XR [Concomitant]
  6. STRATTERA [Concomitant]
  7. TRAMADOL HCL [Concomitant]
  8. DICLOFENAC (DICLOFENAC) [Concomitant]

REACTIONS (2)
  - ANXIETY [None]
  - IMPULSE-CONTROL DISORDER [None]
